FAERS Safety Report 5589522-8 (Version None)
Quarter: 2008Q1

REPORT INFORMATION
  Report Type: 
  Country: None (occurrence: None)
  Receive Date: 20080114
  Receipt Date: 20080107
  Transmission Date: 20080703
  Serious: Yes (Disabling, Other)
  Sender: FDA-Public Use
  Company Number: CA-AVENTIS-200810337GDDC

PATIENT
  Age: 1 Day
  Sex: Female

DRUGS (1)
  1. CLOMID [Suspect]
     Route: 064

REACTIONS (6)
  - ABASIA [None]
  - ANXIETY [None]
  - CEREBRAL PALSY [None]
  - OBSESSIVE-COMPULSIVE DISORDER [None]
  - PREMATURE BABY [None]
  - VISUAL DISTURBANCE [None]
